FAERS Safety Report 10677463 (Version 3)
Quarter: 2015Q2

REPORT INFORMATION
  Report Type: Spontaneous
  Country: GB (occurrence: GB)
  Receive Date: 20141227
  Receipt Date: 20150421
  Transmission Date: 20150821
  Serious: Yes (Other)
  Sender: FDA-Public Use
  Company Number: PHFR2014GB008823

PATIENT
  Age: 61 Year
  Sex: Male
  Weight: 95 kg

DRUGS (2)
  1. NILOTINIB [Suspect]
     Active Substance: NILOTINIB
     Dosage: 600 MG, QD
     Route: 048
  2. NILOTINIB [Suspect]
     Active Substance: NILOTINIB
     Indication: CHRONIC MYELOID LEUKAEMIA
     Dosage: 800 MG, QD
     Route: 048
     Dates: start: 20090102

REACTIONS (3)
  - Blindness unilateral [Recovered/Resolved]
  - Amaurosis fugax [Recovered/Resolved]
  - Carotid artery occlusion [Not Recovered/Not Resolved]

NARRATIVE: CASE EVENT DATE: 201410
